FAERS Safety Report 10022988 (Version 1)
Quarter: 2014Q1

REPORT INFORMATION
  Report Type: Spontaneous
  Country: US (occurrence: US)
  Receive Date: 20140319
  Receipt Date: 20140319
  Transmission Date: 20141002
  Serious: No
  Sender: FDA-Public Use
  Company Number: US-SANOFI-AVENTIS-2013SA094267

PATIENT
  Age: 43 Year
  Sex: Male

DRUGS (2)
  1. LEUKINE [Suspect]
     Indication: SARCOMA
     Route: 065
     Dates: start: 2013
  2. NEULASTA [Concomitant]

REACTIONS (1)
  - Lymphadenopathy [Not Recovered/Not Resolved]
